FAERS Safety Report 6580270-4 (Version None)
Quarter: 2010Q1

REPORT INFORMATION
  Report Type: 
  Country: None (occurrence: None)
  Receive Date: 20100212
  Receipt Date: 20100202
  Transmission Date: 20100710
  Serious: Yes (Hospitalization)
  Sender: FDA-Public Use
  Company Number: ES-GENENTECH-297857

PATIENT
  Sex: Male

DRUGS (4)
  1. RITUXIMAB [Suspect]
     Indication: B-CELL LYMPHOMA
     Dosage: 375 MG/M2, Q28D
     Route: 042
  2. BENDAMUSTINE [Suspect]
     Indication: B-CELL LYMPHOMA
     Dosage: 90 MG/M2, UNK
     Route: 042
  3. MITOXANTRONE [Suspect]
     Indication: B-CELL LYMPHOMA
     Dosage: 6 MG/M2, Q28D
     Route: 042
  4. DEXAMETASONA [Suspect]
     Indication: B-CELL LYMPHOMA
     Dosage: 20 MG, QD
     Route: 048

REACTIONS (1)
  - PLEURAL EFFUSION [None]
